FAERS Safety Report 11885280 (Version 1)
Quarter: 2016Q1

REPORT INFORMATION
  Report Type: Spontaneous
  Country: FR (occurrence: FR)
  Receive Date: 20160104
  Receipt Date: 20160104
  Transmission Date: 20160526
  Serious: Yes (Hospitalization)
  Sender: FDA-Public Use
  Company Number: FR-TEVA-621186ISR

PATIENT
  Age: 39 Year
  Sex: Female

DRUGS (2)
  1. LEELOO 0.1 MG/ 0.02 MG [Suspect]
     Active Substance: ETHINYL ESTRADIOL\LEVONORGESTREL
     Indication: ORAL CONTRACEPTION
     Dosage: 1 DF = ETHINYLESTRADIOL 0.02 MG + LEVONORGESTREL 0.1 MG
     Route: 048
     Dates: start: 201507, end: 201509
  2. DIANE (CYPROTERONE ACETATE\ETHINYL ESTRADIOL) [Suspect]
     Active Substance: CYPROTERONE ACETATE\ETHINYL ESTRADIOL
     Indication: ORAL CONTRACEPTION
     Route: 048
     Dates: start: 2010, end: 201506

REACTIONS (2)
  - Pulmonary arterial hypertension [Recovered/Resolved]
  - Pulmonary embolism [Recovered/Resolved]

NARRATIVE: CASE EVENT DATE: 201509
